FAERS Safety Report 6568286-5 (Version None)
Quarter: 2010Q1

REPORT INFORMATION
  Report Type: 
  Country: None (occurrence: None)
  Receive Date: 20100203
  Receipt Date: 20100119
  Transmission Date: 20100710
  Serious: Yes (Other)
  Sender: FDA-Public Use
  Company Number: US-BAYER-201013434GPV

PATIENT
  Age: 36 Year
  Sex: Male

DRUGS (2)
  1. SOTALOL [Suspect]
     Indication: DRUG USE FOR UNKNOWN INDICATION
  2. OLANZAPINE [Suspect]
     Indication: DRUG USE FOR UNKNOWN INDICATION

REACTIONS (7)
  - BLOOD PRESSURE DECREASED [None]
  - DYSARTHRIA [None]
  - ELECTROCARDIOGRAM QT PROLONGED [None]
  - MENTAL STATUS CHANGES [None]
  - SOMNOLENCE [None]
  - TORSADE DE POINTES [None]
  - VENTRICULAR TACHYCARDIA [None]
